FAERS Safety Report 4409341-5 (Version None)
Quarter: 2004Q3

REPORT INFORMATION
  Report Type: 
  Country: None (occurrence: None)
  Receive Date: 20040723
  Receipt Date: 20040720
  Transmission Date: 20050211
  Serious: Yes (Death)
  Sender: FDA-Public Use
  Company Number: 04-07-1042

PATIENT
  Age: 78 Year
  Sex: Female

DRUGS (1)
  1. CLOZAPINE [Suspect]
     Indication: PARKINSON'S DISEASE
     Dosage: 12-37.5MG ORAL
     Route: 048
     Dates: start: 20021201, end: 20040701

REACTIONS (1)
  - PNEUMONIA [None]
